FAERS Safety Report 22075263 (Version 1)
Quarter: 2023Q1

REPORT INFORMATION
  Report Type: Spontaneous
  Country: US (occurrence: US)
  Receive Date: 20230308
  Receipt Date: 20230308
  Transmission Date: 20230418
  Serious: Yes (Other)
  Sender: FDA-Public Use
  Company Number: US-Blueprint Medicines Corporation-930

PATIENT
  Sex: Female

DRUGS (2)
  1. AYVAKIT [Suspect]
     Active Substance: AVAPRITINIB
     Indication: Systemic mastocytosis
     Route: 065
     Dates: start: 20211207
  2. AYVAKIT [Suspect]
     Active Substance: AVAPRITINIB
     Route: 065
     Dates: start: 20230228

REACTIONS (7)
  - Thyroid cancer [Unknown]
  - Feeling abnormal [Unknown]
  - Memory impairment [Unknown]
  - Disturbance in attention [Unknown]
  - Anaemia [Unknown]
  - Depression [Recovering/Resolving]
  - Wrong technique in product usage process [Unknown]
